FAERS Safety Report 11893205 (Version 1)
Quarter: 2016Q1

REPORT INFORMATION
  Report Type: Other
  Country: GB (occurrence: GB)
  Receive Date: 20160106
  Receipt Date: 20160106
  Transmission Date: 20160526
  Serious: Yes (Other)
  Sender: FDA-Public Use
  Company Number: GB-MYLANLABS-2015M1046983

PATIENT

DRUGS (11)
  1. CLOTRIMAZOLE. [Concomitant]
     Active Substance: CLOTRIMAZOLE
     Dosage: 1 DF, QD (INSERT AT NIGHT)
     Dates: start: 20151022, end: 20151025
  2. COCODAMOL [Concomitant]
     Active Substance: ACETAMINOPHEN\CODEINE PHOSPHATE
     Dosage: UNK (TAKE 1 OR 2 4 TIMES/DAY)
     Dates: start: 20151201
  3. CODEINE PHOSPHATE [Concomitant]
     Active Substance: CODEINE PHOSPHATE
     Dosage: 1 DF, UNK
     Dates: start: 20151215
  4. CANESTEN [Concomitant]
     Active Substance: CLOTRIMAZOLE
     Dosage: 1 DF, BID
     Dates: start: 20151022, end: 20151029
  5. OMEPRAZOLE. [Concomitant]
     Active Substance: OMEPRAZOLE
     Dosage: 1 DF, QD
     Dates: start: 20141015
  6. FLUOXETINE [Concomitant]
     Active Substance: FLUOXETINE HYDROCHLORIDE
     Dosage: 1 DF, BID
     Dates: start: 20141015
  7. IBUPROFEN. [Concomitant]
     Active Substance: IBUPROFEN
     Dosage: UNK (APPLY 3-4 TIMES/DAY)
     Dates: start: 20151201
  8. GABAPENTIN. [Suspect]
     Active Substance: GABAPENTIN
     Indication: NEURALGIA
     Dosage: UNK
     Route: 048
     Dates: start: 20150611
  9. PREGABALIN. [Concomitant]
     Active Substance: PREGABALIN
     Dosage: UNK (TAKE AS DIRECTED BY NEUROLOGIST)
     Dates: start: 20151207
  10. CO-DYDRAMOL [Concomitant]
     Active Substance: ACETAMINOPHEN\DIHYDROCODEINE
     Dosage: UNK (TAKE 1 OR 2 4 TIMES/DAY)
     Dates: start: 20150922, end: 20151006
  11. NAPROXEN. [Concomitant]
     Active Substance: NAPROXEN
     Dosage: 1 DF, BID
     Dates: start: 20141015

REACTIONS (2)
  - Dysphemia [Recovered/Resolved]
  - Confusional state [Recovered/Resolved]

NARRATIVE: CASE EVENT DATE: 20151204
